FAERS Safety Report 4278226-X (Version None)
Quarter: 2004Q1

REPORT INFORMATION
  Report Type: 
  Country: None (occurrence: None)
  Receive Date: 20040122
  Receipt Date: 20040122
  Transmission Date: 20041129
  Serious: Yes (Other)
  Sender: FDA-Public Use
  Company Number: None

PATIENT
  Age: 46 Year
  Sex: Female

DRUGS (7)
  1. CHLORAL HYDRATE  500 -1500MG HS [Suspect]
     Indication: INSOMNIA
     Dosage: 3 DOSES
     Dates: start: 20040102
  2. CHLORAL HYDRATE  500 -1500MG HS [Suspect]
     Indication: INSOMNIA
     Dosage: 3 DOSES
     Dates: start: 20040103
  3. CHLORAL HYDRATE  500 -1500MG HS [Suspect]
     Indication: INSOMNIA
     Dosage: 3 DOSES
     Dates: start: 20040104
  4. ZYPREXA [Suspect]
     Indication: INSOMNIA
     Dosage: 2 DOSES
     Route: 048
     Dates: start: 20040103
  5. ZYPREXA [Suspect]
     Indication: MANIA
     Dosage: 2 DOSES
     Route: 048
     Dates: start: 20040103
  6. ZYPREXA [Suspect]
     Indication: INSOMNIA
     Dosage: 2 DOSES
     Route: 048
     Dates: start: 20040105
  7. ZYPREXA [Suspect]
     Indication: MANIA
     Dosage: 2 DOSES
     Route: 048
     Dates: start: 20040105

REACTIONS (1)
  - RASH [None]
